FAERS Safety Report 16344976 (Version 1)
Quarter: 2019Q2

REPORT INFORMATION
  Report Type: Spontaneous
  Country: US (occurrence: US)
  Receive Date: 20190522
  Receipt Date: 20190522
  Transmission Date: 20190711
  Serious: No
  Sender: FDA-Public Use
  Company Number: US-CUTISPHARMA, INC.-2067337

PATIENT

DRUGS (1)
  1. FIRVANQ [Suspect]
     Active Substance: VANCOMYCIN HYDROCHLORIDE

REACTIONS (1)
  - Diarrhoea [Unknown]

NARRATIVE: CASE EVENT DATE: 20190403
